FAERS Safety Report 9239346 (Version 1)
Quarter: 2013Q2

REPORT INFORMATION
  Report Type: Spontaneous
  Country: AU (occurrence: AU)
  Receive Date: 20130418
  Receipt Date: 20130418
  Transmission Date: 20140414
  Serious: Yes (Other)
  Sender: FDA-Public Use
  Company Number: AU-ROCHE-1215351

PATIENT
  Age: 58 Year
  Sex: Female

DRUGS (6)
  1. HERCEPTIN [Suspect]
     Indication: METASTASIS
     Route: 065
  2. HERCEPTIN [Suspect]
     Route: 065
     Dates: start: 201107
  3. XELODA [Suspect]
     Indication: METASTASIS
     Route: 065
     Dates: start: 201111
  4. TAXOL [Concomitant]
     Indication: METASTASIS
  5. ABRAXANE [Concomitant]
     Indication: METASTASIS
  6. LAPATINIB [Concomitant]
     Indication: METASTASIS

REACTIONS (1)
  - Disease progression [Unknown]
